FAERS Safety Report 22158008 (Version 1)
Quarter: 2023Q1

REPORT INFORMATION
  Report Type: Spontaneous
  Country: JP (occurrence: JP)
  Receive Date: 20230330
  Receipt Date: 20230330
  Transmission Date: 20230418
  Serious: Yes (Other)
  Sender: FDA-Public Use
  Company Number: JP-Merck Healthcare KGaA-9391347

PATIENT
  Age: 70 Year
  Sex: Male

DRUGS (1)
  1. ERBITUX [Suspect]
     Active Substance: CETUXIMAB
     Indication: Nasal sinus cancer
     Dosage: UNK
     Route: 041

REACTIONS (3)
  - Pneumonia aspiration [Unknown]
  - Delirium [Unknown]
  - Stomatitis [Unknown]
